FAERS Safety Report 18436923 (Version 2)
Quarter: 2022Q1

REPORT INFORMATION
  Report Type: Spontaneous
  Country: US (occurrence: US)
  Receive Date: 20201028
  Receipt Date: 20220303
  Transmission Date: 20220424
  Serious: No
  Sender: FDA-Public Use
  Company Number: US-PFIZER INC-2020417182

PATIENT
  Age: 72 Year
  Sex: Female
  Weight: 68.027 kg

DRUGS (2)
  1. IBRANCE [Suspect]
     Active Substance: PALBOCICLIB
     Indication: Breast cancer female
     Dosage: 100 MG
  2. IBRANCE [Suspect]
     Active Substance: PALBOCICLIB
     Dosage: 75 MG, 1X/DAY
     Route: 048

REACTIONS (4)
  - Malaise [Unknown]
  - Chest pain [Unknown]
  - Illness [Unknown]
  - Pleurisy [Unknown]

NARRATIVE: CASE EVENT DATE: 20210801
